FAERS Safety Report 4414740-1 (Version None)
Quarter: 2004Q3

REPORT INFORMATION
  Report Type: 
  Country: None (occurrence: None)
  Receive Date: 20040804
  Receipt Date: 20030805
  Transmission Date: 20050211
  Serious: No
  Sender: FDA-Public Use
  Company Number: US-BRISTOL-MYERS SQUIBB COMPANY-12346672

PATIENT
  Age: 60 Year
  Sex: Female
  Weight: 86 kg

DRUGS (2)
  1. GLUCOVANCE [Suspect]
     Indication: DIABETES MELLITUS
     Dosage: DOSAGE FORM= 2.5/500 MG TABLET
     Route: 048
     Dates: start: 20030701
  2. DIOVAN HCT [Concomitant]
     Dates: start: 20030701

REACTIONS (1)
  - DIZZINESS [None]
